FAERS Safety Report 9040461 (Version 1)
Quarter: 2013Q1

REPORT INFORMATION
  Report Type: Report from Study
  Country: US (occurrence: US)
  Receive Date: 20130129
  Receipt Date: 20130129
  Transmission Date: 20140127
  Serious: No
  Sender: FDA-Public Use
  Company Number: US-ABBOTT-12P-163-0889470-00

PATIENT
  Sex: Female
  Weight: 63.11 kg

DRUGS (22)
  1. HUMIRA 40 MG/0.8 ML PEN [Suspect]
     Indication: RHEUMATOID ARTHRITIS
     Dates: start: 201110, end: 20111204
  2. FOLIC ACID [Concomitant]
     Indication: VITAMIN SUPPLEMENTATION
  3. PREDNISONE [Concomitant]
     Indication: RHEUMATOID ARTHRITIS
  4. METHOTREXATE [Concomitant]
     Indication: RHEUMATOID ARTHRITIS
  5. LYRICA [Concomitant]
     Indication: PRODUCT USED FOR UNKNOWN INDICATION
  6. HYDROCODONE [Concomitant]
     Indication: PAIN
  7. BABY ASPIRIN [Concomitant]
     Indication: PRODUCT USED FOR UNKNOWN INDICATION
  8. PROCARDIA [Concomitant]
     Indication: DRUG THERAPY
     Dosage: GENERIC
  9. DIGOXIN [Concomitant]
     Indication: PRODUCT USED FOR UNKNOWN INDICATION
  10. LISINOPRIL [Concomitant]
     Indication: HYPERTENSION
  11. SIMVASTATIN [Concomitant]
     Indication: BLOOD CHOLESTEROL INCREASED
  12. JANUVIA [Concomitant]
     Indication: DIABETES MELLITUS
  13. CARVEDILOL [Concomitant]
     Indication: DRUG THERAPY
  14. HYDRALAZINE [Concomitant]
     Indication: DRUG THERAPY
  15. PLAVIX [Concomitant]
     Indication: PRODUCT USED FOR UNKNOWN INDICATION
  16. TRICOR [Concomitant]
     Indication: BLOOD CHOLESTEROL INCREASED
  17. VIT D [Concomitant]
     Indication: PRODUCT USED FOR UNKNOWN INDICATION
  18. NOVOLOG [Concomitant]
     Indication: DIABETES MELLITUS
     Dosage: 70/30
  19. NITROGLYCERINE [Concomitant]
     Indication: PRODUCT USED FOR UNKNOWN INDICATION
  20. XALATAN [Concomitant]
     Indication: GLAUCOMA
     Dosage: EYE DROPS
  21. ALPHAGAN [Concomitant]
     Indication: GLAUCOMA
     Dosage: EYE DROPS
  22. AZOPT [Concomitant]
     Indication: GLAUCOMA
     Dosage: EYE DROPS

REACTIONS (4)
  - Malaise [Not Recovered/Not Resolved]
  - Bone pain [Not Recovered/Not Resolved]
  - Temperature intolerance [Not Recovered/Not Resolved]
  - Drug dose omission [Unknown]
